FAERS Safety Report 5520173-7 (Version None)
Quarter: 2007Q4

REPORT INFORMATION
  Report Type: 
  Country: None (occurrence: None)
  Receive Date: 20071116
  Receipt Date: 20071112
  Transmission Date: 20080405
  Serious: Yes (Other)
  Sender: FDA-Public Use
  Company Number: GB-BOEHRINGER INGELHEIM PHARMACEUTICALS, INC.-2007-UK-03573UK

PATIENT
  Age: 67 Year
  Sex: Female
  Weight: 55 kg

DRUGS (5)
  1. SPIRIVA [Suspect]
     Indication: CHRONIC OBSTRUCTIVE PULMONARY DISEASE
     Route: 055
     Dates: start: 20070831, end: 20070918
  2. LOPERAMIDE HCL [Concomitant]
     Route: 048
  3. MEBEVERINE [Concomitant]
     Route: 048
  4. PIZOTIFEN [Concomitant]
     Route: 048
  5. SIMVASTATIN [Concomitant]
     Route: 048

REACTIONS (1)
  - CONFUSIONAL STATE [None]
